FAERS Safety Report 7502559-4 (Version None)
Quarter: 2011Q2

REPORT INFORMATION
  Report Type: 
  Country: None (occurrence: None)
  Receive Date: 20110524
  Receipt Date: 20110524
  Transmission Date: 20111010
  Serious: No
  Sender: FDA-Public Use
  Company Number: None

PATIENT
  Sex: Female
  Weight: 77.4 kg

DRUGS (3)
  1. TAXOTERE [Suspect]
     Dosage: 143 MG
     Dates: end: 20110512
  2. HERCEPTIN [Suspect]
     Dosage: 160 MG
     Dates: end: 20110512
  3. CARBOPLATIN [Suspect]
     Dosage: 625MG
     Dates: end: 20110512

REACTIONS (3)
  - DRUG DOSE OMISSION [None]
  - WHITE BLOOD CELL COUNT ABNORMAL [None]
  - NEUTROPHIL COUNT ABNORMAL [None]
